FAERS Safety Report 11323614 (Version 1)
Quarter: 2015Q3

REPORT INFORMATION
  Report Type: Spontaneous
  Country: CH (occurrence: CH)
  Receive Date: 20150730
  Receipt Date: 20150730
  Transmission Date: 20151125
  Serious: Yes (Other)
  Sender: FDA-Public Use
  Company Number: CH-GLAXOSMITHKLINE-CH2015107394

PATIENT
  Age: 64 Year
  Sex: Female

DRUGS (7)
  1. UTROGESTAN [Concomitant]
     Active Substance: PROGESTERONE
  2. VENTOLIN [Interacting]
     Active Substance: ALBUTEROL SULFATE
     Route: 055
  3. SERETIDE [Suspect]
     Active Substance: FLUTICASONE FUROATE\SALMETEROL XINAFOATE
     Route: 055
  4. NITUX (MORCLOFONE) [Interacting]
     Active Substance: MORCLOFONE
     Indication: COUGH
     Route: 048
     Dates: start: 20150625, end: 20150625
  5. ESTRADIOL AND NORETHINDRONE ACETATE [Concomitant]
     Active Substance: ESTRADIOL\NORETHINDRONE ACETATE
  6. SURMONTIL [Interacting]
     Active Substance: TRIMIPRAMINE MALEATE
     Route: 055
  7. TEMESTA [Concomitant]
     Active Substance: LORAZEPAM

REACTIONS (3)
  - Tachycardia [Recovered/Resolved]
  - Drug interaction [Recovered/Resolved]
  - Palpitations [Recovered/Resolved]

NARRATIVE: CASE EVENT DATE: 20150625
